FAERS Safety Report 18594371 (Version 1)
Quarter: 2020Q4

REPORT INFORMATION
  Report Type: Spontaneous
  Country: US (occurrence: US)
  Receive Date: 20201208
  Receipt Date: 20201208
  Transmission Date: 20210114
  Serious: Yes (Other)
  Sender: FDA-Public Use
  Company Number: None

PATIENT
  Age: 70 Year
  Sex: Male
  Weight: 114.3 kg

DRUGS (2)
  1. BAMLANIVIMAB INFUSION [Suspect]
     Active Substance: BAMLANIVIMAB
     Indication: INFECTION IN AN IMMUNOCOMPROMISED HOST
     Dates: start: 20201207
  2. BAMLANIVIMAB INFUSION [Suspect]
     Active Substance: BAMLANIVIMAB
     Indication: COVID-19
     Dates: start: 20201207

REACTIONS (9)
  - Pyrexia [None]
  - Fear [None]
  - Dizziness [None]
  - Refusal of examination [None]
  - Feeling abnormal [None]
  - Chills [None]
  - Nausea [None]
  - Wheezing [None]
  - Headache [None]

NARRATIVE: CASE EVENT DATE: 20201207
